FAERS Safety Report 4939189-4 (Version None)
Quarter: 2006Q1

REPORT INFORMATION
  Report Type: 
  Country: None (occurrence: None)
  Receive Date: 20060309
  Receipt Date: 20060309
  Transmission Date: 20060701
  Serious: Yes (Death)
  Sender: FDA-Public Use
  Company Number: None

PATIENT
  Age: 76 Year
  Sex: Male
  Weight: 71.9 kg

DRUGS (12)
  1. CISPLATIN [Suspect]
     Indication: OESOPHAGEAL CARCINOMA
     Dosage: 25 MG/M2 Q WK W/RADS
     Dates: start: 20051227, end: 20060131
  2. DOCETAXEL [Suspect]
     Dosage: 10MG/M2 Q WK W/  RADS
     Dates: start: 20051227, end: 20060131
  3. LISINOPRIL [Concomitant]
  4. ZOCOR [Concomitant]
  5. ASPIRIN [Concomitant]
  6. ZANTAC [Concomitant]
  7. ALKA SELTZER [Concomitant]
  8. DECADRON SRC [Concomitant]
  9. EMEND [Concomitant]
  10. ZOFRAN [Concomitant]
  11. COMPAZINE [Concomitant]
  12. AMBIEN [Concomitant]

REACTIONS (18)
  - ACUTE PRERENAL FAILURE [None]
  - CELLULITIS [None]
  - COMPUTERISED TOMOGRAM ABDOMEN ABNORMAL [None]
  - DEPRESSED LEVEL OF CONSCIOUSNESS [None]
  - DYSPNOEA [None]
  - FEEDING TUBE COMPLICATION [None]
  - GASTROINTESTINAL DISORDER [None]
  - INADEQUATE DIET [None]
  - INFECTION [None]
  - INFLAMMATION [None]
  - KLEBSIELLA INFECTION [None]
  - PAIN [None]
  - POSTOPERATIVE WOUND INFECTION [None]
  - REFUSAL OF TREATMENT BY RELATIVE [None]
  - RENAL FAILURE ACUTE [None]
  - SEPSIS SYNDROME [None]
  - STAPHYLOCOCCAL INFECTION [None]
  - TACHYCARDIA [None]
